FAERS Safety Report 7475683-2 (Version None)
Quarter: 2011Q2

REPORT INFORMATION
  Report Type: 
  Country: None (occurrence: None)
  Receive Date: 20110512
  Receipt Date: 20110502
  Transmission Date: 20111010
  Serious: Yes (Hospitalization)
  Sender: FDA-Public Use
  Company Number: US-ELI_LILLY_AND_COMPANY-US201105001740

PATIENT
  Sex: Female

DRUGS (2)
  1. HUMALOG [Suspect]
     Dosage: UNK, PRN
  2. NPH INSULIN [Concomitant]
     Dosage: 8 U, UNK

REACTIONS (5)
  - HOSPITALISATION [None]
  - BLOOD GLUCOSE DECREASED [None]
  - COLD SWEAT [None]
  - INCORRECT DOSE ADMINISTERED [None]
  - BLOOD GLUCOSE INCREASED [None]
